FAERS Safety Report 9013480 (Version 1)
Quarter: 2012Q4

REPORT INFORMATION
  Report Type: Spontaneous
  Country: GB (occurrence: None)
  Receive Date: 20121231
  Receipt Date: 20121231
  Transmission Date: 20130627
  Serious: Yes (Other)
  Sender: FDA-Public Use
  Company Number: AUR-APL-2012-05555

PATIENT
  Age: 51 Year
  Sex: Female

DRUGS (8)
  1. GABAPENTIN (GABAPENTIN) [Suspect]
     Indication: DRUG USE FOR UNKNOWN INDICATION
     Dates: start: 20121011
  2. ATORVASTATIN (ATORVASTATIN) [Concomitant]
  3. CITALOPRAM (CITALOPRAM) [Concomitant]
  4. CO-CODAMOL (PANADEINE CO) [Concomitant]
  5. CODEINE PHOSPHATE (CODEINE PHOSPHATE) [Concomitant]
  6. CO-TEMODONE (TENORETIC) [Concomitant]
  7. LOSARTAN (LOSARTAN) [Concomitant]
  8. TERBINAFINE (TERBINAFINE) [Concomitant]

REACTIONS (2)
  - Rash [None]
  - Skin exfoliation [None]
